FAERS Safety Report 9841012 (Version 3)
Quarter: 2014Q1

REPORT INFORMATION
  Report Type: Report from Study
  Country: PL (occurrence: PL)
  Receive Date: 20140124
  Receipt Date: 20140312
  Transmission Date: 20141002
  Serious: Yes (Hospitalization)
  Sender: FDA-Public Use
  Company Number: PL-ASTELLAS-2014US000636

PATIENT
  Age: 12 Year
  Sex: Male
  Weight: 40 kg

DRUGS (3)
  1. TACROLIMUS OINTMENT [Suspect]
     Indication: DERMATITIS ATOPIC
     Dosage: 0.03 %, ONCE A DAY, TWICE WEEKLY
     Route: 061
     Dates: start: 20081107
  2. TACROLIMUS OINTMENT [Suspect]
     Dosage: 0.03 %, WEEKLY
     Route: 061
     Dates: start: 20081107, end: 20090110
  3. NOVO-HELISEN                       /07398401/ [Concomitant]
     Indication: PRODUCT USED FOR UNKNOWN INDICATION
     Dosage: UNK UNK, UNKNOWN/D
     Route: 065
     Dates: start: 2011

REACTIONS (2)
  - Joint injury [Unknown]
  - Wrist fracture [Recovered/Resolved with Sequelae]
